FAERS Safety Report 22154592 (Version 1)
Quarter: 2023Q1

REPORT INFORMATION
  Report Type: Spontaneous
  Country: CN (occurrence: None)
  Receive Date: 20230330
  Receipt Date: 20230330
  Transmission Date: 20230417
  Serious: Yes (Hospitalization, Other)
  Sender: FDA-Public Use
  Company Number: CN-ROCHE-3318628

PATIENT
  Age: 68 Year
  Sex: Female

DRUGS (5)
  1. MABTHERA [Suspect]
     Active Substance: RITUXIMAB
     Indication: Squamous cell carcinoma of the oral cavity
     Route: 041
     Dates: start: 20230310, end: 20230310
  2. CYCLOPHOSPHAMIDE [Suspect]
     Active Substance: CYCLOPHOSPHAMIDE
     Indication: Squamous cell carcinoma of the oral cavity
     Route: 041
     Dates: start: 20230311, end: 20230311
  3. DOXORUBICIN HYDROCHLORIDE [Suspect]
     Active Substance: DOXORUBICIN HYDROCHLORIDE
     Indication: Squamous cell carcinoma of the oral cavity
     Route: 041
     Dates: start: 20230311, end: 20230311
  4. VINDESINE SULFATE [Suspect]
     Active Substance: VINDESINE SULFATE
     Indication: Squamous cell carcinoma of the oral cavity
     Route: 041
     Dates: start: 20230311, end: 20230311
  5. DEXAMETHASONE [Concomitant]
     Active Substance: DEXAMETHASONE
     Indication: Squamous cell carcinoma of the oral cavity
     Dates: start: 20230311, end: 20230315

REACTIONS (5)
  - Agranulocytosis [Recovering/Resolving]
  - Pyrexia [Recovering/Resolving]
  - Myelosuppression [Recovering/Resolving]
  - Platelet count decreased [Unknown]
  - Intentional product use issue [Unknown]

NARRATIVE: CASE EVENT DATE: 20230318
